FAERS Safety Report 9372838 (Version 3)
Quarter: 2014Q3

REPORT INFORMATION
  Report Type: Spontaneous
  Country: US (occurrence: US)
  Receive Date: 20130627
  Receipt Date: 20140916
  Transmission Date: 20150326
  Serious: Yes (Hospitalization, Other)
  Sender: FDA-Public Use
  Company Number: US-009507513-1306USA013064

PATIENT
  Sex: Female

DRUGS (1)
  1. NUVARING [Suspect]
     Active Substance: ETHINYL ESTRADIOL\ETONOGESTREL
     Indication: PRODUCT USED FOR UNKNOWN INDICATION
     Dosage: 1 RING FOR 21 DAYS, THEN OUT FOR 7 DAYS
     Route: 067
     Dates: start: 2010

REACTIONS (14)
  - Pulmonary embolism [Unknown]
  - Deep vein thrombosis [Unknown]
  - Nasal congestion [Unknown]
  - Fluid intake reduced [Unknown]
  - Early satiety [Unknown]
  - Nausea [Unknown]
  - Depression [Unknown]
  - Uterine dilation and curettage [Unknown]
  - Deep vein thrombosis [Unknown]
  - Smear cervix abnormal [Unknown]
  - Upper respiratory tract infection [Unknown]
  - Liver function test abnormal [Unknown]
  - Abnormal faeces [Recovering/Resolving]
  - Rhinorrhoea [Unknown]

NARRATIVE: CASE EVENT DATE: 201101
